FAERS Safety Report 20912668 (Version 1)
Quarter: 2022Q2

REPORT INFORMATION
  Report Type: Spontaneous
  Country: US (occurrence: None)
  Receive Date: 20220603
  Receipt Date: 20220603
  Transmission Date: 20220720
  Serious: No
  Sender: FDA-Public Use
  Company Number: None

PATIENT
  Age: 61 Year
  Sex: Female
  Weight: 179.2 kg

DRUGS (12)
  1. TEMOZOLOMIDE [Suspect]
     Active Substance: TEMOZOLOMIDE
     Indication: Brain neoplasm malignant
     Dosage: 280MG DAIY ORAL
     Route: 048
  2. ROSUVASTATIN CALCIUM [Concomitant]
     Active Substance: ROSUVASTATIN CALCIUM
  3. ONDANSETRON [Concomitant]
     Active Substance: ONDANSETRON
  4. ALPRAZOLAM [Concomitant]
     Active Substance: ALPRAZOLAM
  5. ASPIRIN [Concomitant]
     Active Substance: ASPIRIN
  6. ESOMEPRAZOLE [Concomitant]
     Active Substance: ESOMEPRAZOLE
  7. MAGNESIUM [Concomitant]
     Active Substance: MAGNESIUM
  8. LISINOPRIL [Concomitant]
     Active Substance: LISINOPRIL
  9. AZITHROMYCIN [Concomitant]
  10. MEDROL [Concomitant]
     Active Substance: METHYLPREDNISOLONE
  11. Tassalon [Concomitant]
  12. Perles [Concomitant]

REACTIONS (1)
  - Disease progression [None]
